FAERS Safety Report 26129737 (Version 2)
Quarter: 2025Q4

REPORT INFORMATION
  Report Type: Spontaneous
  Country: US (occurrence: US)
  Receive Date: 20251208
  Receipt Date: 20251223
  Transmission Date: 20260118
  Serious: No
  Sender: LEO PHARM
  Company Number: US-LEO Pharma-384655

PATIENT
  Age: 68 Year
  Sex: Female

DRUGS (1)
  1. ADBRY [Suspect]
     Active Substance: TRALOKINUMAB-LDRM
     Indication: Dermatitis atopic
     Dosage: TREATMENT REPORTED AS ONGOING; EXPIRY DATE IS 31-OCT-2027
     Dates: start: 202507

REACTIONS (2)
  - Pruritus [Unknown]
  - Product quality issue [Unknown]
